FAERS Safety Report 17106574 (Version 1)
Quarter: 2019Q4

REPORT INFORMATION
  Report Type: Spontaneous
  Country: JP (occurrence: JP)
  Receive Date: 20191203
  Receipt Date: 20191203
  Transmission Date: 20200122
  Serious: Yes (Hospitalization, Disabling)
  Sender: FDA-Public Use
  Company Number: JP-OTSUKA-000672

PATIENT
  Age: 40 Year
  Sex: Female

DRUGS (6)
  1. FLUDARABINE PHOSPHATE. [Suspect]
     Active Substance: FLUDARABINE PHOSPHATE
     Indication: PRODUCT USED FOR UNKNOWN INDICATION
     Dosage: 30 MG/M2, UNK
     Route: 042
     Dates: start: 20070711, end: 20070716
  2. ITRACONAZOLE. [Suspect]
     Active Substance: ITRACONAZOLE
     Indication: PRODUCT USED FOR UNKNOWN INDICATION
     Dosage: UNK
     Route: 065
  3. METHOTREXATE. [Suspect]
     Active Substance: METHOTREXATE
     Indication: PRODUCT USED FOR UNKNOWN INDICATION
     Dosage: UNK
     Route: 065
  4. BUSULFEX [Suspect]
     Active Substance: BUSULFAN
     Indication: STEM CELL TRANSPLANT
     Dosage: 31.2 ML, UNK
     Route: 042
     Dates: start: 20070713, end: 20070714
  5. GANCICLOVIR. [Suspect]
     Active Substance: GANCICLOVIR
     Indication: PRODUCT USED FOR UNKNOWN INDICATION
     Dosage: UNK
     Route: 065
  6. PHENYTOIN. [Concomitant]
     Active Substance: PHENYTOIN
     Indication: PRODUCT USED FOR UNKNOWN INDICATION
     Dosage: UNK
     Route: 065
     Dates: start: 20070711, end: 20070716

REACTIONS (16)
  - Acute graft versus host disease [Recovering/Resolving]
  - Decreased appetite [Recovering/Resolving]
  - Drug-induced liver injury [Recovering/Resolving]
  - Drug-induced liver injury [Recovering/Resolving]
  - Diarrhoea [Recovering/Resolving]
  - Cytomegalovirus viraemia [Recovering/Resolving]
  - Staphylococcal sepsis [Recovering/Resolving]
  - Mucosal disorder [Recovering/Resolving]
  - Nausea [Recovering/Resolving]
  - Vomiting [Recovering/Resolving]
  - Stomatitis [Recovering/Resolving]
  - Vomiting [Recovering/Resolving]
  - Cystitis haemorrhagic [Recovering/Resolving]
  - Malaise [Recovering/Resolving]
  - Bacterial sepsis [Recovering/Resolving]
  - Pseudomembranous colitis [Recovering/Resolving]

NARRATIVE: CASE EVENT DATE: 20070714
